FAERS Safety Report 24648797 (Version 1)
Quarter: 2024Q4

REPORT INFORMATION
  Report Type: Spontaneous
  Country: PL (occurrence: PL)
  Receive Date: 20241121
  Receipt Date: 20241121
  Transmission Date: 20250115
  Serious: Yes (Other)
  Sender: FRESENIUS KABI
  Company Number: PL-BRISTOL-MYERS SQUIBB COMPANY-2024-172202

PATIENT
  Age: 68 Year
  Sex: Female

DRUGS (6)
  1. OXALIPLATIN [Suspect]
     Active Substance: OXALIPLATIN
     Indication: Product used for unknown indication
     Dosage: FORM OF ADMIN: UNKNOWN?ROUTE OF ADMIN: UNKNOWN
     Dates: end: 20240710
  2. NIVOLUMAB [Suspect]
     Active Substance: NIVOLUMAB
     Indication: Adenocarcinoma
     Dosage: 240 MG, EVERY 14 DAYS?FOA: UNKNOWN
     Route: 042
     Dates: start: 20240202, end: 20241030
  3. FLUOROURACIL\LEUCOVORIN CALCIUM\OXALIPLATIN [Suspect]
     Active Substance: FLUOROURACIL\LEUCOVORIN CALCIUM\OXALIPLATIN
     Indication: Product used for unknown indication
     Dosage: REGIMEN DAY 1-2  EVERY 14 DAYS?FOA: UNKNOWN?ROA: UNKNOWN
  4. MEGESTROL [Concomitant]
     Active Substance: MEGESTROL
     Indication: Decreased appetite
     Dosage: ROA: UNKNOWN ?FOA: UNKNOWN
  5. Noliprel [Concomitant]
     Indication: Hypertension
     Dosage: 5 + 1.25, 1 X 1 TABLET?FOA: TABLET?ROA: UNKNOWN
  6. NALOXONE HYDROCHLORIDE\OXYCODONE HYDROCHLORIDE [Concomitant]
     Active Substance: NALOXONE HYDROCHLORIDE\OXYCODONE HYDROCHLORIDE
     Indication: Pain
     Dosage: (5MG+2.5MG) 2X1 PILL EVERY 12H?FOA: PILL?ROA: UNKNOWN
     Dates: end: 20240710

REACTIONS (3)
  - Angiopathy [Unknown]
  - Polyneuropathy [Unknown]
  - Spinal osteoarthritis [Unknown]

NARRATIVE: CASE EVENT DATE: 20240202
